FAERS Safety Report 22766378 (Version 3)
Quarter: 2023Q4

REPORT INFORMATION
  Report Type: Report from Study
  Country: PL (occurrence: None)
  Receive Date: 20230731
  Receipt Date: 20231023
  Transmission Date: 20240110
  Serious: Yes (Hospitalization)
  Sender: FDA-Public Use
  Company Number: PL-ROCHE-3394006

PATIENT
  Age: 43 Year
  Sex: Male
  Weight: 69 kg

DRUGS (2)
  1. AFM-24 [Suspect]
     Active Substance: AFM-24
     Indication: Cholangiocarcinoma
     Dosage: TOTAL AFM24 DOSE PLANNED FOR LAST INFUSION PRIOR TO EVENT WAS 480MG?TOTAL AFM24 DOSE RECEIVED DURING
     Route: 042
     Dates: start: 20230523, end: 20230627
  2. ATEZOLIZUMAB [Suspect]
     Active Substance: ATEZOLIZUMAB
     Indication: Cholangiocarcinoma
     Dosage: LAST TREATMENT OF ATEZOLIZUMAB PRIOR TO THE EVENT WAS ON 27/JUN/2023 (C2D1)
     Route: 041
     Dates: start: 20230530, end: 20230627

REACTIONS (1)
  - Pelvic venous thrombosis [Recovering/Resolving]

NARRATIVE: CASE EVENT DATE: 20230628
